FAERS Safety Report 6078861-2 (Version None)
Quarter: 2009Q1

REPORT INFORMATION
  Report Type: 
  Country: None (occurrence: None)
  Receive Date: 20090216
  Receipt Date: 20090205
  Transmission Date: 20090719
  Serious: Yes (Other)
  Sender: FDA-Public Use
  Company Number: PHHY2009BR04310

PATIENT
  Age: 38 Year
  Sex: Male

DRUGS (6)
  1. DIOVAN [Suspect]
     Indication: HYPERTENSION
     Dosage: 160 MG, QD
     Route: 048
     Dates: start: 20081225
  2. DIOVAN [Suspect]
     Dosage: 320 MG, 1 TABLET IN THE MORNING
     Route: 048
  3. AMLODIPINE [Suspect]
     Indication: HYPERTENSION
     Dosage: 1 TABLET AT NIGHT
     Route: 048
     Dates: start: 20081225
  4. HYDROCHLOROTHIAZIDE [Suspect]
     Indication: HYPERTENSION
     Dosage: 25 MG, 1 TABLET IN MORNING
     Route: 048
     Dates: start: 20081225
  5. AAS [Suspect]
     Dosage: 100 MG, 2 TABLETS AFTER LUNCH
     Route: 048
     Dates: start: 20081225
  6. SIMVASTATIN [Suspect]
     Indication: BLOOD CHOLESTEROL
     Dosage: 1 TABLET AT NIGHT
     Route: 048
     Dates: start: 20081225

REACTIONS (2)
  - BLOOD TRIGLYCERIDES INCREASED [None]
  - HYPERTENSION [None]
